FAERS Safety Report 23274469 (Version 4)
Quarter: 2024Q1

REPORT INFORMATION
  Report Type: Spontaneous
  Country: US (occurrence: US)
  Receive Date: 20231208
  Receipt Date: 20240322
  Transmission Date: 20240410
  Serious: No
  Sender: FDA-Public Use
  Company Number: US-GSK-US2023AMR167531

PATIENT
  Sex: Female

DRUGS (2)
  1. ZEJULA [Suspect]
     Active Substance: NIRAPARIB
     Indication: Ovarian cancer
     Dosage: 100 MG, QD
     Route: 048
     Dates: start: 20231109
  2. ZEJULA [Suspect]
     Active Substance: NIRAPARIB
     Dosage: 200 MG, QD
     Route: 048
     Dates: start: 202402

REACTIONS (8)
  - Platelet count decreased [Not Recovered/Not Resolved]
  - Red blood cell count decreased [Recovered/Resolved]
  - Respiratory tract congestion [Not Recovered/Not Resolved]
  - Cough [Recovered/Resolved]
  - Increased tendency to bruise [Not Recovered/Not Resolved]
  - Illness [Not Recovered/Not Resolved]
  - Product dose omission in error [Unknown]
  - Incorrect dose administered [Unknown]
